FAERS Safety Report 20353893 (Version 1)
Quarter: 2022Q1

REPORT INFORMATION
  Report Type: Spontaneous
  Country: FR (occurrence: FR)
  Receive Date: 20220120
  Receipt Date: 20220120
  Transmission Date: 20220423
  Serious: Yes (Hospitalization, Other)
  Sender: FDA-Public Use
  Company Number: None

PATIENT
  Age: 70 Year
  Sex: Male
  Weight: 80 kg

DRUGS (8)
  1. HEPARIN SODIUM [Suspect]
     Active Substance: HEPARIN SODIUM
     Indication: Thrombosis prophylaxis
     Dosage: 25000 IU, (25 000 IU/5 ML)
     Route: 042
     Dates: start: 20210611, end: 20210617
  2. HEPARIN SODIUM [Suspect]
     Active Substance: HEPARIN SODIUM
     Indication: Atrial fibrillation
     Dosage: 25000 IU, (25 000 IU/5 ML)
     Route: 042
     Dates: start: 20210621, end: 20210624
  3. LOVENOX [Suspect]
     Active Substance: ENOXAPARIN SODIUM
     Indication: Thrombosis prophylaxis
     Dosage: 4000 IU, (40 MG)/0,4 ML
     Route: 058
     Dates: start: 20210617, end: 20210621
  4. ASTRAZENECA COVID-19 VACCINE [Concomitant]
     Active Substance: AZD-1222
     Dosage: UNK
     Route: 030
     Dates: start: 20210520
  5. MORPHINE [Concomitant]
     Active Substance: MORPHINE
     Dosage: 10 MG
     Route: 065
  6. CYANOKIT [Concomitant]
     Active Substance: HYDROXOCOBALAMIN
     Dosage: UNK
     Route: 065
  7. NOREPINEPHRINE [Concomitant]
     Active Substance: NOREPINEPHRINE
     Dosage: UNK
     Route: 065
  8. ARGATROBAN [Concomitant]
     Active Substance: ARGATROBAN
     Dosage: UNK
     Dates: start: 20210625

REACTIONS (1)
  - Heparin-induced thrombocytopenia [Not Recovered/Not Resolved]

NARRATIVE: CASE EVENT DATE: 20210624
